FAERS Safety Report 4367841-0 (Version None)
Quarter: 2004Q2

REPORT INFORMATION
  Report Type: 
  Country: None (occurrence: None)
  Receive Date: 20040601
  Receipt Date: 20040601
  Transmission Date: 20050107
  Serious: Yes (Other)
  Sender: FDA-Public Use
  Company Number: None

PATIENT
  Age: 64 Year
  Sex: Male

DRUGS (3)
  1. DOPAMINE HCL [Suspect]
  2. LEVOPHED [Suspect]
  3. DOBUTAMINE [Suspect]

REACTIONS (2)
  - EXTREMITY NECROSIS [None]
  - PERIPHERAL ISCHAEMIA [None]
